FAERS Safety Report 8954746 (Version 1)
Quarter: 2012Q4

REPORT INFORMATION
  Report Type: 
  Country: US (occurrence: US)
  Receive Date: 20121207
  Receipt Date: 20121207
  Transmission Date: 20130627
  Serious: Yes (Other)
  Sender: FDA-Public Use
  Company Number: US-GLAXOSMITHKLINE-A1003733A

PATIENT
  Age: 23 Year
  Sex: Female

DRUGS (2)
  1. LAMICTAL [Suspect]
     Indication: CONVULSION
     Dosage: 200MG Twice per day
     Route: 048
     Dates: start: 2002
  2. NO CONCURRENT MEDICATION [Concomitant]

REACTIONS (2)
  - Grand mal convulsion [Recovered/Resolved]
  - Drug administration error [Unknown]
